FAERS Safety Report 5201104-6 (Version None)
Quarter: 2007Q1

REPORT INFORMATION
  Report Type: 
  Country: None (occurrence: None)
  Receive Date: 20070103
  Receipt Date: 20061219
  Transmission Date: 20070707
  Serious: Yes (Hospitalization, Other)
  Sender: FDA-Public Use
  Company Number: PAR_1175_2006

PATIENT
  Age: 27 Year
  Sex: Male

DRUGS (2)
  1. SULFAMETHOXAZOLE W/TRIMETHOPRIM [Suspect]
     Indication: OPPORTUNISTIC INFECTION PROPHYLAXIS
     Dosage: DF PO
     Route: 048
     Dates: start: 20040316, end: 20040505
  2. PREDNISOLONE [Concomitant]

REACTIONS (9)
  - BLOOD LACTATE DEHYDROGENASE INCREASED [None]
  - DERMATITIS EXFOLIATIVE [None]
  - DISEASE RECURRENCE [None]
  - DRUG HYPERSENSITIVITY [None]
  - HEPATOSPLENOMEGALY [None]
  - HYPERKERATOSIS [None]
  - LYMPHADENOPATHY [None]
  - SKIN HYPERTROPHY [None]
  - VIRAL INFECTION [None]
